FAERS Safety Report 21314898 (Version 2)
Quarter: 2022Q3

REPORT INFORMATION
  Report Type: Report from Study
  Country: CN (occurrence: CN)
  Receive Date: 20220909
  Receipt Date: 20220915
  Transmission Date: 20221027
  Serious: Yes (Death, Life-Threatening, Hospitalization, Other)
  Sender: FDA-Public Use
  Company Number: CN-BRISTOL-MYERS SQUIBB COMPANY-2022-088817

PATIENT
  Age: 34 Year
  Sex: Male
  Weight: 56 kg

DRUGS (27)
  1. AZACITIDINE [Suspect]
     Active Substance: AZACITIDINE
     Indication: Acute myeloid leukaemia
     Dosage: D1-5
     Route: 058
     Dates: start: 20220721, end: 20220725
  2. VENETOCLAX [Suspect]
     Active Substance: VENETOCLAX
     Indication: Acute myeloid leukaemia
     Dosage: DAYS 1-28
     Route: 048
     Dates: start: 20220721, end: 20220731
  3. POSACONAZOLE [Concomitant]
     Active Substance: POSACONAZOLE
     Indication: Antifungal prophylaxis
     Dosage: 60 DAYS
     Route: 048
  4. ACYCLOVIR [Concomitant]
     Active Substance: ACYCLOVIR
     Indication: Antifungal prophylaxis
     Dosage: 3 IN 1 D
     Route: 048
     Dates: start: 20220429
  5. URSODIOL [Concomitant]
     Active Substance: URSODIOL
     Indication: Product used for unknown indication
     Route: 048
     Dates: start: 20220813, end: 20220814
  6. URSODIOL [Concomitant]
     Active Substance: URSODIOL
     Route: 048
     Dates: start: 20220714
  7. CALCITRIOL [Concomitant]
     Active Substance: CALCITRIOL
     Indication: Supplementation therapy
     Route: 048
     Dates: start: 20220429
  8. METHYLPREDNISOLONE [Concomitant]
     Active Substance: METHYLPREDNISOLONE
     Indication: Prophylaxis against transplant rejection
     Dosage: 2 IN 1 D
     Route: 048
     Dates: start: 20220624, end: 20220706
  9. METHYLPREDNISOLONE [Concomitant]
     Active Substance: METHYLPREDNISOLONE
     Dosage: 2 IN 1 D
     Route: 048
     Dates: start: 20220707, end: 20220707
  10. METHYLPREDNISOLONE [Concomitant]
     Active Substance: METHYLPREDNISOLONE
     Dosage: 1 IN 1 D
     Route: 048
     Dates: start: 20220714, end: 20220720
  11. METHYLPREDNISOLONE [Concomitant]
     Active Substance: METHYLPREDNISOLONE
     Dosage: FREQUENCY: AT NIGHT (0.5 TABLET,1 IN 1 D
     Route: 048
     Dates: start: 20220721, end: 20220721
  12. CYCLOSPORINE [Concomitant]
     Active Substance: CYCLOSPORINE
     Indication: Prophylaxis against transplant rejection
     Dosage: 2 IN 1 D
     Route: 048
     Dates: start: 20220630
  13. HERBALS\DIAMMONIUM GLYCYRRHIZINATE [Concomitant]
     Active Substance: HERBALS\DIAMMONIUM GLYCYRRHIZINATE
     Indication: Prophylaxis
     Dosage: 3 IN 1 D
     Route: 048
     Dates: start: 20220624, end: 20220713
  14. HERBALS\DIAMMONIUM GLYCYRRHIZINATE [Concomitant]
     Active Substance: HERBALS\DIAMMONIUM GLYCYRRHIZINATE
     Dosage: 2 IN 1 D
     Route: 048
     Dates: start: 20220714
  15. SACCHAROMYCES CEREVISIAE [Concomitant]
     Active Substance: SACCHAROMYCES CEREVISIAE
     Indication: Product used for unknown indication
     Dosage: 2 PACKAGE (2 IN 1 D)
     Route: 048
     Dates: start: 20220624, end: 20220726
  16. SACCHAROMYCES CEREVISIAE [Concomitant]
     Active Substance: SACCHAROMYCES CEREVISIAE
     Dosage: 1 IN 1 D
     Route: 040
     Dates: start: 20220805
  17. RABEPRAZOLE [Concomitant]
     Active Substance: RABEPRAZOLE
     Indication: Prophylaxis
     Dosage: 1 IN 1 D
     Route: 048
     Dates: start: 20220624, end: 20220713
  18. RABEPRAZOLE [Concomitant]
     Active Substance: RABEPRAZOLE
     Dosage: 1 IN 1 D
     Route: 048
     Dates: start: 20220714, end: 20220714
  19. RABEPRAZOLE [Concomitant]
     Active Substance: RABEPRAZOLE
     Dosage: 1 IN 1 D
     Route: 048
     Dates: start: 20220730, end: 20220801
  20. CEFACLOR [Concomitant]
     Active Substance: CEFACLOR
     Indication: Infection prophylaxis
     Dosage: 2 IN 1 D
     Route: 048
     Dates: start: 20220624, end: 20220630
  21. CEFACLOR [Concomitant]
     Active Substance: CEFACLOR
     Dosage: 2 IN 1 D
     Route: 048
     Dates: start: 20220726
  22. CALCITRIOL [Concomitant]
     Active Substance: CALCITRIOL
     Indication: Supplementation therapy
     Dosage: 1 IN 1 D
     Route: 048
     Dates: start: 20220429
  23. ACYCLOVIR [Concomitant]
     Active Substance: ACYCLOVIR
     Indication: Antifungal prophylaxis
     Dosage: 3 IN 1 D
     Route: 048
     Dates: start: 20220429
  24. CEFACLOR [Concomitant]
     Active Substance: CEFACLOR
     Indication: Infection prophylaxis
     Dosage: 2 IN 1 D
     Route: 048
     Dates: start: 20220624, end: 20220630
  25. CEFACLOR [Concomitant]
     Active Substance: CEFACLOR
     Dosage: 2 IN 1 D
     Route: 048
     Dates: start: 20220726
  26. MYCOPHENOLATE SODIUM [Concomitant]
     Active Substance: MYCOPHENOLATE SODIUM
     Indication: Product used for unknown indication
     Route: 048
     Dates: start: 20220630, end: 20220706
  27. MYCOPHENOLATE SODIUM [Concomitant]
     Active Substance: MYCOPHENOLATE SODIUM
     Route: 048
     Dates: start: 20220707, end: 20220707

REACTIONS (2)
  - Septic shock [Fatal]
  - Pyrexia [Recovered/Resolved]

NARRATIVE: CASE EVENT DATE: 20220730
